FAERS Safety Report 6570421-X (Version None)
Quarter: 2010Q1

REPORT INFORMATION
  Report Type: 
  Country: None (occurrence: None)
  Receive Date: 20100204
  Receipt Date: 20090413
  Transmission Date: 20100710
  Serious: No
  Sender: FDA-Public Use
  Company Number: A0775897A

PATIENT
  Age: 75 Year
  Sex: Male

DRUGS (27)
  1. ARIXTRA [Suspect]
     Dosage: 2.5MG PER DAY
     Route: 058
     Dates: start: 20090320
  2. ACETAMINOPHEN [Concomitant]
  3. ASCORBIC ACID [Concomitant]
  4. ASPIRIN [Concomitant]
  5. CALCIUM CARBONATE [Concomitant]
  6. DEMECLOCYCLINE HCL [Concomitant]
  7. DIGOXIN [Concomitant]
  8. DILTIAZEM HCL [Concomitant]
  9. DOCUSATE [Concomitant]
  10. ERGOCALCIFEROL [Concomitant]
  11. FOLIC ACID [Concomitant]
  12. VICODIN [Concomitant]
  13. LIDOCAINE [Concomitant]
  14. MODAFINIL [Concomitant]
  15. MULTI-VITAMIN [Concomitant]
  16. PROTONIX [Concomitant]
  17. ZOLOFT [Concomitant]
  18. SPIRONOLACTONE [Concomitant]
  19. THIAMINE [Concomitant]
  20. VITAMIN A [Concomitant]
     Route: 048
  21. ZINC SULFATE [Concomitant]
  22. VORICONAZOLE [Concomitant]
     Route: 042
  23. ALBUTEROL [Concomitant]
  24. IPRATROPIUM [Concomitant]
  25. PLAVIX [Concomitant]
  26. METOPROLOL TARTRATE [Concomitant]
  27. POTASSIUM CHLORIDE [Concomitant]
     Route: 042

REACTIONS (1)
  - DRUG LEVEL DECREASED [None]
